FAERS Safety Report 19999378 (Version 1)
Quarter: 2021Q4

REPORT INFORMATION
  Report Type: Spontaneous
  Country: US (occurrence: US)
  Receive Date: 20211027
  Receipt Date: 20211027
  Transmission Date: 20220304
  Serious: Yes (Other)
  Sender: FDA-Public Use
  Company Number: US-AUROBINDO-AUR-APL-2021-032811

PATIENT
  Sex: Female
  Weight: 103 kg

DRUGS (30)
  1. CLOZAPINE [Suspect]
     Active Substance: CLOZAPINE
     Indication: Product used for unknown indication
     Dosage: UNK
     Route: 065
  2. CLOZAPINE [Suspect]
     Active Substance: CLOZAPINE
     Indication: Product used for unknown indication
     Dosage: UNK
     Route: 065
  3. ERGOCALCIFEROL [Concomitant]
     Active Substance: ERGOCALCIFEROL
     Indication: Supplementation therapy
     Dosage: UNK
     Route: 048
  4. LEVOTHYROXINE [Concomitant]
     Active Substance: LEVOTHYROXINE
     Indication: Hypothyroidism
     Dosage: UNK, DAILY
     Route: 048
  5. LEVOTHYROXINE [Interacting]
     Active Substance: LEVOTHYROXINE
     Indication: Hypothyroidism
     Dosage: UNK, DAILY
     Route: 048
  6. ONDANSETRON [Concomitant]
     Active Substance: ONDANSETRON
     Indication: Nausea
     Dosage: UNK, 3 TIMES A DAY (DAILY DOSES REMAINING: 3)
     Route: 048
  7. ASPIRIN [Concomitant]
     Active Substance: ASPIRIN
     Indication: Cardiac disorder
     Dosage: UNK, ONCE A DAY
     Route: 048
  8. FERROUS SULFATE [Concomitant]
     Active Substance: FERROUS SULFATE
     Indication: Mineral supplementation
     Dosage: UNK, ONCE A DAY
     Route: 048
  9. Cholac [Concomitant]
     Indication: Constipation
     Dosage: UNK, ONCE A DAY
     Route: 048
  10. ZESTRIL [Concomitant]
     Active Substance: LISINOPRIL
     Indication: Hypertension
     Dosage: UNK, ONCE A DAY
     Route: 048
  11. METFORMIN [Concomitant]
     Active Substance: METFORMIN HYDROCHLORIDE
     Indication: Diabetes mellitus
     Dosage: UNK UNK, TWO TIMES A DAY (WITH BREAKFAST AND SUPPER)
     Route: 048
  12. METOPROLOL [Interacting]
     Active Substance: METOPROLOL
     Indication: Hypertension
     Dosage: UNK, ONCE A DAY
     Route: 048
  13. OMEGA-3 ACIDS [Concomitant]
     Active Substance: OMEGA-3 FATTY ACIDS
     Indication: Supplementation therapy
     Dosage: UNK, ONCE A DAY
     Route: 048
  14. PANTOPRAZOLE [Concomitant]
     Active Substance: PANTOPRAZOLE
     Indication: Gastrooesophageal reflux disease
     Dosage: UNK, ONCE A DAY
     Route: 048
  15. POLYETHYLENE GLYCOL 3350 [Concomitant]
     Active Substance: POLYETHYLENE GLYCOL 3350
     Indication: Constipation
     Dosage: UNK, ONCE A DAY
     Route: 048
  16. ATORVASTATIN [Concomitant]
     Active Substance: ATORVASTATIN
     Indication: High density lipoprotein
     Dosage: UNK, ONCE A DAY (AT BED TIME)
     Route: 048
  17. GLUCAGON [Concomitant]
     Active Substance: GLUCAGON
     Indication: Hypoglycaemia
     Dosage: UNK, ONCE A DAY
     Route: 030
  18. DEXTROSE [Concomitant]
     Active Substance: DEXTROSE
     Indication: Hypoglycaemia
     Dosage: UNK, EVERY 15 MINUTES
     Route: 048
  19. BENZTROPINE [Concomitant]
     Active Substance: BENZTROPINE
     Indication: Extrapyramidal disorder
     Dosage: UNK,TO GIVE 3 MG USE 3 OF 1 MG TWO TIMES A DAY
     Route: 048
  20. HALOPERIDOL [Concomitant]
     Active Substance: HALOPERIDOL
     Indication: Psychotic disorder
     Dosage: UNK, TWO TIMES A DAY
     Route: 048
  21. RISPERIDONE [Concomitant]
     Active Substance: RISPERIDONE
     Indication: Psychotic disorder
     Dosage: UNK, TWO TIMES A DAY
     Route: 048
  22. DIVALPROEX SODIUM [Concomitant]
     Active Substance: DIVALPROEX SODIUM
     Indication: Affective disorder
     Dosage: UNK, TWO TIMES A DAY
     Route: 048
  23. ACETAMINOPHEN [Concomitant]
     Active Substance: ACETAMINOPHEN
     Indication: Pyrexia
     Dosage: UNK, TO GIVE 650 MG USE 2 OF 325 MG EVERY 6 HOURS
     Route: 048
  24. ACETAMINOPHEN [Concomitant]
     Active Substance: ACETAMINOPHEN
     Indication: Pain
  25. Bacitracin;Neomycin;Polymyxin b [Concomitant]
     Indication: Skin abrasion
     Dosage: UNK, DAILY DOSES REMAINING: 2 TWO TIMES A DAY
     Route: 061
  26. DIPHENHYDRAMINE [Concomitant]
     Active Substance: DIPHENHYDRAMINE
     Indication: Insomnia
     Dosage: MAY REPEAT 25MG IF INEFFECTIVE IN 2 HOURS (DAILY DOSES REMAINING: 2)
     Route: 048
  27. DOCUSATE SODIUM [Concomitant]
     Active Substance: DOCUSATE SODIUM
     Indication: Constipation
     Dosage: UNK,(DAILY DOSES REMAINING: 1)ONCE A DAY
     Route: 048
  28. HYDROXYZINE PAMOATE [Concomitant]
     Active Substance: HYDROXYZINE PAMOATE
     Indication: Anxiety
     Dosage: UNK (DAILY DOSES REMAINING: 4), FOUR TIMES/DAY
     Route: 048
  29. ATIVAN [Concomitant]
     Active Substance: LORAZEPAM
     Indication: Agitation
     Dosage: UNK,(DAILY DOSES REMAINING: 3) 3 TIMES A DAY
     Route: 048
  30. LORAZEPAM [Concomitant]
     Active Substance: LORAZEPAM
     Indication: Agitation
     Dosage: UNK, (DAILY DOSES REMAINING: 3) 3 TIMES A DAY
     Route: 030

REACTIONS (3)
  - Suicidal ideation [Unknown]
  - Schizophrenia [Unknown]
  - Depression [Unknown]
